FAERS Safety Report 11655137 (Version 1)
Quarter: 2015Q4

REPORT INFORMATION
  Report Type: Spontaneous
  Country: US (occurrence: US)
  Receive Date: 20151023
  Receipt Date: 20151023
  Transmission Date: 20160304
  Serious: Yes (Other)
  Sender: FDA-Public Use
  Company Number: US-APOTEX-2015AP013628

PATIENT
  Age: 31 Year
  Sex: Female

DRUGS (8)
  1. MYCOPHENOLATE MOFETIL. [Suspect]
     Active Substance: MYCOPHENOLATE MOFETIL
     Dosage: 2 G/DAY
     Route: 065
  2. TACROLIMUS. [Suspect]
     Active Substance: TACROLIMUS
     Indication: IMMUNOSUPPRESSANT DRUG THERAPY
     Route: 065
  3. PREDNISONE. [Suspect]
     Active Substance: PREDNISONE
     Dosage: 4 MG/DAY
     Route: 065
  4. BELATACEPT [Suspect]
     Active Substance: BELATACEPT
     Dosage: 5 MG/KG KG MONTHLY
     Route: 065
  5. BELATACEPT [Suspect]
     Active Substance: BELATACEPT
     Indication: IMMUNOSUPPRESSANT DRUG THERAPY
     Dosage: 5 MG/KG KG ON DAYS 1, 15, 29, 42, 57 AND THEN MONTHLY
     Route: 065
  6. MYCOPHENOLATE MOFETIL. [Suspect]
     Active Substance: MYCOPHENOLATE MOFETIL
     Indication: IMMUNOSUPPRESSANT DRUG THERAPY
     Dosage: 1-2 G/DAY
     Route: 065
  7. THYMOGLOBULIN [Suspect]
     Active Substance: LAPINE T-LYMPHOCYTE IMMUNE GLOBULIN
     Indication: IMMUNOSUPPRESSANT DRUG THERAPY
     Dosage: 6 MG/KG, UNK
     Route: 065
  8. PREDNISONE. [Suspect]
     Active Substance: PREDNISONE
     Indication: IMMUNOSUPPRESSANT DRUG THERAPY
     Dosage: TAPERED TO 5-10 MG/DAY BY 3 MONTHS POST-TRANSPLANT
     Route: 065

REACTIONS (3)
  - Urinary tract infection [Recovered/Resolved]
  - Renal tubular atrophy [Unknown]
  - Kidney fibrosis [Unknown]
